FAERS Safety Report 4337942-1 (Version None)
Quarter: 2004Q1

REPORT INFORMATION
  Report Type: 
  Country: None (occurrence: None)
  Receive Date: 20040329
  Receipt Date: 20040127
  Transmission Date: 20041129
  Serious: No
  Sender: FDA-Public Use
  Company Number: USA040157703

PATIENT
  Age: 14 Year
  Sex: Male
  Weight: 59 kg

DRUGS (3)
  1. STRATTERA [Suspect]
     Dosage: 60 MG
     Dates: start: 20030701
  2. WELLBUTRIN [Concomitant]
  3. EFFEXOR /USA/ (VENLAFAXINE) [Concomitant]

REACTIONS (5)
  - AGITATION [None]
  - DISTRACTIBILITY [None]
  - DISTURBANCE IN ATTENTION [None]
  - FATIGUE [None]
  - IRRITABILITY [None]
